FAERS Safety Report 15384907 (Version 5)
Quarter: 2019Q1

REPORT INFORMATION
  Report Type: Spontaneous
  Country: US (occurrence: US)
  Receive Date: 20180914
  Receipt Date: 20190109
  Transmission Date: 20190417
  Serious: No
  Sender: FDA-Public Use
  Company Number: US-PFIZER INC-2018369889

PATIENT
  Age: 37 Year
  Sex: Female
  Weight: 113 kg

DRUGS (3)
  1. LYRICA [Suspect]
     Active Substance: PREGABALIN
     Indication: FIBROMYALGIA
     Dosage: 150 MG, 2X/DAY
     Route: 048
     Dates: start: 2018, end: 2018
  2. LYRICA [Suspect]
     Active Substance: PREGABALIN
     Indication: PAIN
     Dosage: 225 MG, 2X/DAY
     Route: 048
     Dates: start: 2018, end: 2018
  3. LYRICA [Suspect]
     Active Substance: PREGABALIN
     Dosage: 200 MG, UNK
     Dates: start: 2018

REACTIONS (7)
  - Hypoaesthesia [Recovering/Resolving]
  - Drug effect incomplete [Unknown]
  - Fall [Unknown]
  - Somnolence [Recovering/Resolving]
  - Asthma [Unknown]
  - Feeling abnormal [Recovering/Resolving]
  - Head injury [Unknown]

NARRATIVE: CASE EVENT DATE: 2018
